FAERS Safety Report 19067636 (Version 1)
Quarter: 2021Q1

REPORT INFORMATION
  Report Type: Spontaneous
  Country: US (occurrence: US)
  Receive Date: 20210329
  Receipt Date: 20210329
  Transmission Date: 20210420
  Serious: No
  Sender: FDA-Public Use
  Company Number: US-BAYER-2021-110643

PATIENT
  Sex: Female

DRUGS (2)
  1. CLARITIN LIQUI?GELS [Suspect]
     Active Substance: LORATADINE
     Indication: HYPERSENSITIVITY
     Route: 048
  2. CLARITIN LIQUI?GELS [Suspect]
     Active Substance: LORATADINE
     Indication: FEELING COLD

REACTIONS (1)
  - Abdominal pain upper [Unknown]
